FAERS Safety Report 12477709 (Version 2)
Quarter: 2016Q3

REPORT INFORMATION
  Report Type: Report from Study
  Country: US (occurrence: US)
  Receive Date: 20160617
  Receipt Date: 20160829
  Transmission Date: 20161109
  Serious: Yes (Hospitalization)
  Sender: FDA-Public Use
  Company Number: US-PFIZER INC-2016307086

PATIENT
  Age: 74 Year
  Sex: Female
  Weight: 102 kg

DRUGS (36)
  1. METHOTREXATE SODIUM. [Suspect]
     Active Substance: METHOTREXATE SODIUM
     Indication: CENTRAL NERVOUS SYSTEM LYMPHOMA
     Dosage: 6.25 G, ONCE
     Route: 042
     Dates: start: 20160222, end: 20160222
  2. DIGOXIN. [Concomitant]
     Active Substance: DIGOXIN
     Indication: SINUS NODE DYSFUNCTION
     Dosage: 0.125 MG, QD
     Route: 048
     Dates: start: 20160210, end: 20160210
  3. FOLIC ACID. [Concomitant]
     Active Substance: FOLIC ACID
     Indication: MEDICAL DIET
     Dosage: 800 UG, QD
     Route: 048
     Dates: start: 201507
  4. LEVOTHYROXINE. [Concomitant]
     Active Substance: LEVOTHYROXINE
     Indication: HYPOTHYROIDISM
     Dosage: 125 UG, QD
     Route: 048
     Dates: start: 1982
  5. VALSARTAN. [Concomitant]
     Active Substance: VALSARTAN
     Indication: HYPERTENSION
     Dosage: 160 MG, QD
     Route: 048
     Dates: start: 20160210, end: 20160210
  6. KEPPRA [Concomitant]
     Active Substance: LEVETIRACETAM
     Dosage: 1000 MG, BID
     Route: 048
     Dates: start: 20160210
  7. SODIUM POTASSIUM PHOSPHATE PACK [Concomitant]
     Indication: HYPOKALAEMIA
     Dosage: 1 PACK, BID
     Route: 048
     Dates: start: 20160131, end: 20160209
  8. SODIUM CHLORIDE. [Concomitant]
     Active Substance: SODIUM CHLORIDE
     Indication: PROPHYLAXIS
     Dosage: 50 ML, QD
     Route: 042
     Dates: start: 20160209, end: 20160209
  9. CELECOXIB. [Suspect]
     Active Substance: CELECOXIB
     Indication: OSTEOARTHRITIS
     Dosage: 2X/DAY
     Route: 048
     Dates: start: 20120915, end: 20160112
  10. VITAMIN D3 [Concomitant]
     Active Substance: CHOLECALCIFEROL
     Indication: MEDICAL DIET
     Dosage: 1000 IU, QD
     Route: 048
     Dates: start: 201507
  11. CEFAZOLIN [Concomitant]
     Active Substance: CEFAZOLIN
     Indication: INFECTION PROPHYLAXIS
     Dosage: 6 G, QD
     Route: 042
     Dates: start: 20160210
  12. DEXAMETHASONE. [Concomitant]
     Active Substance: DEXAMETHASONE
     Dosage: 4 MG, BID
     Route: 048
     Dates: start: 20160211
  13. FUROSEMIDE. [Concomitant]
     Active Substance: FUROSEMIDE
     Indication: HYPERTENSION
     Dosage: 20 MG, QD
     Route: 048
     Dates: start: 20160210, end: 20160210
  14. METOPROLOL. [Concomitant]
     Active Substance: METOPROLOL
     Indication: ATRIAL FIBRILLATION
     Dosage: 25 MG, BID
     Route: 048
     Dates: start: 20160211
  15. XYLOCAINE /00033402/ [Concomitant]
     Indication: SINUS NODE DYSFUNCTION
  16. PANTOPRAZOLE [Concomitant]
     Active Substance: PANTOPRAZOLE SODIUM
     Indication: PROPHYLAXIS
     Dosage: 40 MG, QD
     Route: 048
     Dates: start: 20160210, end: 20160210
  17. CELECOXIB. [Suspect]
     Active Substance: CELECOXIB
     Indication: RHEUMATOID ARTHRITIS
  18. KEPPRA [Concomitant]
     Active Substance: LEVETIRACETAM
     Indication: PROPHYLAXIS
     Dosage: 1000 MG, BID
     Route: 048
     Dates: start: 20160203, end: 20160208
  19. SODIUM POTASSIUM PHOSPHATE PACK [Concomitant]
     Indication: HYPOPHOSPHATAEMIA
  20. BAKING SODA AND SALT MIXTURE RINSE [Concomitant]
     Indication: MUCOSAL INFLAMMATION
     Dosage: 15 ML, PRN, SWISH AND SPIT
     Dates: start: 20150819
  21. DSW [Concomitant]
     Indication: INFECTION PROPHYLAXIS
     Dosage: 100 ML, FREQ: 2 DAY; INTERVAL: 1
     Route: 042
     Dates: start: 20160208, end: 20160210
  22. LIPITOR [Concomitant]
     Active Substance: ATORVASTATIN CALCIUM
     Indication: DYSLIPIDAEMIA
     Dosage: 80 MG, QD
     Route: 048
     Dates: start: 20160130, end: 20160210
  23. LIPITOR [Concomitant]
     Active Substance: ATORVASTATIN CALCIUM
     Dosage: 40 MG, QD
     Route: 048
     Dates: start: 20160211
  24. HYDROCHLOROTHIAZIDE. [Concomitant]
     Active Substance: HYDROCHLOROTHIAZIDE
     Indication: OEDEMA
     Dosage: 12.5 MG, QD
     Route: 048
     Dates: start: 20160210, end: 20160210
  25. VALSARTAN. [Concomitant]
     Active Substance: VALSARTAN
     Dosage: 320 MG, QD
     Route: 048
     Dates: start: 20160211
  26. NEXIUM [Concomitant]
     Active Substance: ESOMEPRAZOLE MAGNESIUM
     Indication: PROPHYLAXIS
     Dosage: 20 MG, DAILY
     Route: 048
     Dates: start: 20120915, end: 20160112
  27. HYDROCODONE BITARTRATE AND ACETAMINOPHEN [Concomitant]
     Active Substance: ACETAMINOPHEN\HYDROCODONE BITARTRATE
     Indication: PAIN
     Dosage: 1 TAB, BID
     Route: 048
     Dates: start: 20160210, end: 20160210
  28. KEPPRA [Concomitant]
     Active Substance: LEVETIRACETAM
     Dosage: 1000 MG, QD
     Route: 048
     Dates: start: 20160209, end: 20160209
  29. SODIUM POTASSIUM PHOSPHATE PACK [Concomitant]
     Indication: HYPONATRAEMIA
     Dosage: 1 PACK, QD
     Route: 048
     Dates: start: 20160210, end: 20160210
  30. HYDROCHLOROTHIAZIDE. [Concomitant]
     Active Substance: HYDROCHLOROTHIAZIDE
     Dosage: 25 MG, QD
     Route: 048
     Dates: start: 20160211
  31. VITAMIN E /00110501/ [Concomitant]
     Active Substance: TOCOPHEROL
     Indication: MEDICAL DIET
     Dosage: 400 IU, QD
     Route: 048
     Dates: start: 2000
  32. CEFAZOLIN [Concomitant]
     Active Substance: CEFAZOLIN
     Indication: STAPHYLOCOCCAL BACTERAEMIA
  33. DEXAMETHASONE. [Concomitant]
     Active Substance: DEXAMETHASONE
     Indication: CENTRAL NERVOUS SYSTEM LYMPHOMA
     Dosage: 4 MG, QD
     Route: 048
     Dates: start: 20160208, end: 20160210
  34. HYDROCHLOROTHIAZIDE. [Concomitant]
     Active Substance: HYDROCHLOROTHIAZIDE
     Indication: HYPERTENSION
     Dosage: 12.5 MG, QD
     Route: 048
     Dates: start: 20160207, end: 20160208
  35. MAGNESIUM SULFATE. [Concomitant]
     Active Substance: MAGNESIUM SULFATE
     Indication: PROPHYLAXIS
     Dosage: 1 G, QD
     Route: 042
     Dates: start: 20160209, end: 20160209
  36. XYLOCAINE /00033402/ [Concomitant]
     Indication: LOCAL ANAESTHESIA
     Dosage: 1 %, ONCE
     Route: 023
     Dates: start: 20160209, end: 20160209

REACTIONS (3)
  - Hypomagnesaemia [Not Recovered/Not Resolved]
  - Hypokalaemia [Recovering/Resolving]
  - Fungal skin infection [Not Recovered/Not Resolved]

NARRATIVE: CASE EVENT DATE: 20160222
